FAERS Safety Report 17376096 (Version 1)
Quarter: 2020Q1

REPORT INFORMATION
  Report Type: Spontaneous
  Country: US (occurrence: US)
  Receive Date: 20200205
  Receipt Date: 20200205
  Transmission Date: 20200409
  Serious: Yes (Other)
  Sender: FDA-Public Use
  Company Number: None

PATIENT
  Age: 55 Year
  Sex: Female
  Weight: 67.5 kg

DRUGS (2)
  1. ESTRADIOL TRANSDERMAL SYSTEM [Suspect]
     Active Substance: ESTRADIOL
     Indication: MENOPAUSE
     Dosage: ?          QUANTITY:1 PATCH(ES);OTHER FREQUENCY:2 TIMES WEEKLY;?
     Route: 062
     Dates: start: 20191222, end: 20191230
  2. PROGESTERONE. [Concomitant]
     Active Substance: PROGESTERONE

REACTIONS (3)
  - Vaginal haemorrhage [None]
  - Rash pruritic [None]
  - Application site rash [None]

NARRATIVE: CASE EVENT DATE: 20191228
